FAERS Safety Report 9138578 (Version 1)
Quarter: 2013Q1

REPORT INFORMATION
  Report Type: Spontaneous
  Country: GB (occurrence: GB)
  Receive Date: 20130305
  Receipt Date: 20130305
  Transmission Date: 20140127
  Serious: Yes (Hospitalization, Other)
  Sender: FDA-Public Use
  Company Number: GB-PAR PHARMACEUTICAL, INC-2013SCPR005781

PATIENT
  Sex: 0

DRUGS (1)
  1. CIPROFLOXACIN ER [Suspect]
     Indication: DIARRHOEA HAEMORRHAGIC
     Dosage: 500 MG, TWICE DAILY
     Route: 048

REACTIONS (2)
  - Haemolytic uraemic syndrome [Recovered/Resolved]
  - Thrombotic thrombocytopenic purpura [Recovered/Resolved]
